FAERS Safety Report 8281704-X (Version None)
Quarter: 2012Q2

REPORT INFORMATION
  Report Type: 
  Country: None (occurrence: None)
  Receive Date: 20120413
  Receipt Date: 20120411
  Transmission Date: 20120825
  Serious: Yes (Death, Life-Threatening)
  Sender: FDA-Public Use
  Company Number: GB-PFIZER INC-2012019304

PATIENT
  Age: 30 Year
  Sex: Female
  Weight: 109.9 kg

DRUGS (8)
  1. NORETHISTERONE ACETATE [Concomitant]
     Indication: BLOOD FOLLICLE STIMULATING HORMONE DECREASED
  2. SOMATROPIN [Suspect]
     Dosage: 0.4 (UNITS UNKNOWN) 7XWEEKLY
     Dates: start: 19970820, end: 19971117
  3. NORETHISTERONE ACETATE [Concomitant]
     Indication: BLOOD LUTEINISING HORMONE DECREASED
     Dosage: UNK
     Dates: start: 19950801
  4. PARACETAMOL [Concomitant]
     Indication: HEADACHE
     Dosage: UNK
     Dates: start: 19830101
  5. SOMATROPIN [Suspect]
     Indication: GROWTH HORMONE DEFICIENCY
     Dosage: 0.3 (UNITS UNKNOWN) 7XWEEKLY
     Dates: start: 19970403
  6. PYRIDOXINE [Concomitant]
     Indication: VITAMIN B6 DEFICIENCY
     Dosage: UNK
     Dates: start: 19950801
  7. IBUPROFEN [Concomitant]
     Indication: HEADACHE
     Dosage: UNK
     Dates: start: 19830101
  8. NORETHISTERONE ACETATE [Concomitant]
     Indication: HYPOGONADISM FEMALE

REACTIONS (1)
  - DEATH [None]
